FAERS Safety Report 8262769 (Version 2)
Quarter: 2015Q2

REPORT INFORMATION
  Report Type: Report from Study
  Country: US (occurrence: US)
  Receive Date: 20111124
  Receipt Date: 20150612
  Transmission Date: 20150821
  Serious: Yes (Hospitalization)
  Sender: FDA-Public Use
  Company Number: US-ROCHE-1014217

PATIENT
  Age: 46 Year
  Sex: Female
  Weight: 70.45 kg

DRUGS (11)
  1. NEURONTIN [Concomitant]
     Active Substance: GABAPENTIN
  2. CISPLATIN. [Suspect]
     Active Substance: CISPLATIN
     Indication: CERVIX CARCINOMA
     Dosage: ON DAY 2.  LAST ADMINISTERED DOSE ON 25/AUG/2011,
     Route: 042
     Dates: start: 20110824
  3. XANAX [Concomitant]
     Active Substance: ALPRAZOLAM
  4. MORPHINE [Concomitant]
     Active Substance: MORPHINE
  5. BEVACIZUMAB [Suspect]
     Active Substance: BEVACIZUMAB
     Indication: CERVIX CARCINOMA
     Dosage: OVER 30-90 MIN ON DAY 2. LAST ADMINISTERED DOSE ON 25/AUG/2011
     Route: 042
     Dates: start: 20110824
  6. PACLITAXEL. [Suspect]
     Active Substance: PACLITAXEL
     Indication: CERVIX CARCINOMA
     Dosage: OVER 24 HOURS ON DAY 1, CYCLE 21 DAYS  LAST ADMINISTERED DOSE ON 24/AUG/2011, 18/JAN/2012
     Route: 042
     Dates: start: 20110824
  7. LEXAPRO [Concomitant]
     Active Substance: ESCITALOPRAM OXALATE
  8. OXYCODONE [Concomitant]
     Active Substance: OXYCODONE
  9. BACLOFEN. [Concomitant]
     Active Substance: BACLOFEN
  10. LYRICA [Concomitant]
     Active Substance: PREGABALIN
  11. DILAUDID [Concomitant]
     Active Substance: HYDROMORPHONE HYDROCHLORIDE

REACTIONS (10)
  - Embolism [Not Recovered/Not Resolved]
  - International normalised ratio increased [Not Recovered/Not Resolved]
  - Pain in extremity [Not Recovered/Not Resolved]
  - White blood cell count decreased [Recovering/Resolving]
  - Anaemia [Recovering/Resolving]
  - Pain [Recovered/Resolved]
  - Hypocalcaemia [Recovering/Resolving]
  - Hypomagnesaemia [Recovered/Resolved]
  - Hyponatraemia [Recovered/Resolved]
  - Platelet count decreased [Recovering/Resolving]

NARRATIVE: CASE EVENT DATE: 20110909
